FAERS Safety Report 19158120 (Version 1)
Quarter: 2021Q2

REPORT INFORMATION
  Report Type: Spontaneous
  Country: US (occurrence: US)
  Receive Date: 20210420
  Receipt Date: 20210420
  Transmission Date: 20210717
  Serious: Yes (Hospitalization)
  Sender: FDA-Public Use
  Company Number: US-MYLANLABS-2021M1023338

PATIENT
  Age: 75 Year
  Sex: Male

DRUGS (8)
  1. ASPIRIN                            /00002701/ [Suspect]
     Active Substance: ASPIRIN
     Indication: ISCHAEMIC STROKE
  2. CLOPIDOGREL [Suspect]
     Active Substance: CLOPIDOGREL BISULFATE
     Indication: ISCHAEMIC STROKE
  3. HEPARIN [Suspect]
     Active Substance: HEPARIN SODIUM
     Indication: CAROTID ARTERY THROMBOSIS
     Dosage: UNK
     Route: 041
  4. APIXABAN [Suspect]
     Active Substance: APIXABAN
     Indication: ISCHAEMIC STROKE
  5. APIXABAN [Suspect]
     Active Substance: APIXABAN
     Indication: CAROTID ARTERY THROMBOSIS
     Dosage: 2.5 MILLIGRAM, BID
     Route: 065
  6. HEPARIN [Suspect]
     Active Substance: HEPARIN SODIUM
     Indication: ISCHAEMIC STROKE
  7. CLOPIDOGREL [Suspect]
     Active Substance: CLOPIDOGREL BISULFATE
     Indication: CAROTID ARTERY THROMBOSIS
     Dosage: 75 MILLIGRAM, QD
     Route: 065
  8. ASPIRIN                            /00002701/ [Suspect]
     Active Substance: ASPIRIN
     Indication: CAROTID ARTERY THROMBOSIS
     Dosage: 81 MILLIGRAM
     Route: 065

REACTIONS (1)
  - Drug ineffective [Unknown]
